FAERS Safety Report 5640080-9 (Version None)
Quarter: 2008Q1

REPORT INFORMATION
  Report Type: 
  Country: None (occurrence: None)
  Receive Date: 20080227
  Receipt Date: 20080128
  Transmission Date: 20080703
  Serious: No
  Sender: FDA-Public Use
  Company Number: US-BAYER-200812751NA

PATIENT
  Age: 4 Year
  Sex: Male

DRUGS (1)
  1. YAZ [Suspect]
     Route: 048
     Dates: start: 20080128, end: 20080128

REACTIONS (1)
  - ACCIDENTAL EXPOSURE [None]
